FAERS Safety Report 16343284 (Version 1)
Quarter: 2019Q2

REPORT INFORMATION
  Report Type: Spontaneous
  Country: US (occurrence: US)
  Receive Date: 20190522
  Receipt Date: 20190522
  Transmission Date: 20190711
  Serious: No
  Sender: FDA-Public Use
  Company Number: US-BAYER-2019-096332

PATIENT
  Age: 2 Year
  Sex: Female

DRUGS (2)
  1. CLARITIN [Suspect]
     Active Substance: LORATADINE
     Dosage: 4.9 ML, ONCE
     Route: 048
     Dates: start: 20190514
  2. CLARITIN [Suspect]
     Active Substance: LORATADINE
     Dosage: 0.5 DF, ONCE
     Route: 048
     Dates: start: 20190514

REACTIONS (1)
  - Extra dose administered [Unknown]

NARRATIVE: CASE EVENT DATE: 20190514
